FAERS Safety Report 5029583-8 (Version None)
Quarter: 2006Q2

REPORT INFORMATION
  Report Type: 
  Country: None (occurrence: None)
  Receive Date: 20060620
  Receipt Date: 20060609
  Transmission Date: 20061013
  Serious: Yes (Hospitalization)
  Sender: FDA-Public Use
  Company Number: PHNU2006DE02238

PATIENT
  Age: 15 Year
  Sex: Female

DRUGS (1)
  1. CLOZAPINE [Suspect]
     Route: 048

REACTIONS (5)
  - CIRCULATORY COLLAPSE [None]
  - DRUG TOXICITY [None]
  - FALL [None]
  - GASTRIC LAVAGE [None]
  - SELF-MEDICATION [None]
